FAERS Safety Report 7537655-9 (Version None)
Quarter: 2011Q2

REPORT INFORMATION
  Report Type: 
  Country: None (occurrence: None)
  Receive Date: 20110609
  Receipt Date: 20110607
  Transmission Date: 20111010
  Serious: Yes (Hospitalization)
  Sender: FDA-Public Use
  Company Number: US-NOVOPROD-324132

PATIENT

DRUGS (10)
  1. IDEG FLEXPEN [Suspect]
     Indication: TYPE 1 DIABETES MELLITUS
     Dosage: 63 IU, QD
     Route: 058
     Dates: start: 20100401, end: 20100929
  2. NOVORAPID FLEXPEN [Suspect]
     Dosage: 10 U, PER HOUR FOR 3 HOURS
     Dates: start: 20110223, end: 20110323
  3. INSULATARD HM(GE) [Suspect]
     Indication: TYPE 1 DIABETES MELLITUS
     Dosage: 50 IU, QD
     Route: 058
     Dates: start: 20100930, end: 20101006
  4. CLONIDINE [Concomitant]
     Indication: HYPERTENSION
     Dosage: 0.1 MG, QD
     Dates: start: 20100925
  5. NOVORAPID FLEXPEN [Suspect]
     Dosage: 67 IU, QD
     Route: 058
     Dates: start: 20110226
  6. ALTACE [Concomitant]
     Indication: HYPERTENSION
     Dosage: 2.5 MG, QD
     Route: 048
     Dates: start: 20090101
  7. NOVORAPID FLEXPEN [Suspect]
     Indication: TYPE 1 DIABETES MELLITUS
     Dosage: 67 IU, QD
     Route: 058
     Dates: start: 20100401, end: 20100401
  8. IDEG FLEXPEN [Suspect]
     Dosage: 63 IU, QD
     Route: 058
     Dates: start: 20101007, end: 20110224
  9. IDEG FLEXPEN [Suspect]
     Dosage: 63 IU, QD
     Route: 058
     Dates: start: 20110228
  10. BENADRYL [Concomitant]
     Dosage: 50 MG, UNK
     Dates: start: 20110224

REACTIONS (7)
  - POLLAKIURIA [None]
  - HYPEROSMOLAR STATE [None]
  - HYPERAESTHESIA [None]
  - THIRST [None]
  - HYPOVOLAEMIA [None]
  - DIABETIC KETOACIDOSIS [None]
  - ABDOMINAL PAIN [None]
